FAERS Safety Report 7586148-1 (Version None)
Quarter: 2011Q2

REPORT INFORMATION
  Report Type: 
  Country: None (occurrence: None)
  Receive Date: 20110603
  Receipt Date: 20101105
  Transmission Date: 20111010
  Serious: Yes (Other)
  Sender: FDA-Public Use
  Company Number: CTI_01263_2010

PATIENT
  Age: 61 Year
  Sex: Female

DRUGS (3)
  1. PLAVIX [Concomitant]
  2. FACTIVE [Suspect]
     Indication: PRODUCT USED FOR UNKNOWN INDICATION
     Dosage: (DF)
     Dates: start: 20101104
  3. DIABETES CONTROL MEDICATION [Concomitant]

REACTIONS (1)
  - SWOLLEN TONGUE [None]
